FAERS Safety Report 5744172-5 (Version None)
Quarter: 2008Q2

REPORT INFORMATION
  Report Type: 
  Country: None (occurrence: None)
  Receive Date: 20080520
  Receipt Date: 20080507
  Transmission Date: 20081010
  Serious: Yes (Other)
  Sender: FDA-Public Use
  Company Number: US-BAYER-200817856NA

PATIENT
  Age: 75 Year
  Sex: Male
  Weight: 89 kg

DRUGS (4)
  1. LEUKINE (LYOPHOLIZED POWDER) [Suspect]
     Indication: NEUTROPENIA
     Dosage: TOTAL DAILY DOSE: 500 ?G
     Route: 058
     Dates: start: 20080321, end: 20080323
  2. CARBOPLATIN [Concomitant]
     Indication: LUNG NEOPLASM MALIGNANT
  3. TAXOL [Concomitant]
     Indication: LUNG NEOPLASM MALIGNANT
  4. AVASTIN [Concomitant]
     Indication: LUNG NEOPLASM MALIGNANT

REACTIONS (1)
  - SYNCOPE [None]
